FAERS Safety Report 6429517-5 (Version None)
Quarter: 2009Q4

REPORT INFORMATION
  Report Type: 
  Country: None (occurrence: None)
  Receive Date: 20091105
  Receipt Date: 20080226
  Transmission Date: 20100525
  Serious: Yes (Other)
  Sender: FDA-Public Use
  Company Number: GB-GENENTECH-244969

PATIENT
  Age: 74 Year
  Sex: Male

DRUGS (3)
  1. AVASTIN [Suspect]
     Indication: CHOROIDAL NEOVASCULARISATION
     Dosage: 1.25 MG, UNK
     Route: 031
  2. ALTEPLASE [Suspect]
     Indication: RETINAL HAEMORRHAGE
  3. PERFLUOROPROPANE [Suspect]
     Indication: RETINAL HAEMORRHAGE
     Dosage: 0.3 ML, UNK
     Route: 031

REACTIONS (2)
  - RETINAL PIGMENT EPITHELIAL TEAR [None]
  - VISUAL ACUITY REDUCED [None]
